FAERS Safety Report 15345319 (Version 1)
Quarter: 2018Q3

REPORT INFORMATION
  Report Type: Spontaneous
  Country: GB (occurrence: GB)
  Receive Date: 20180903
  Receipt Date: 20180903
  Transmission Date: 20181010
  Serious: Yes (Life-Threatening)
  Sender: FDA-Public Use
  Company Number: GB-009507513-1808GBR011672

PATIENT
  Age: 24 Year
  Sex: Female
  Weight: 100 kg

DRUGS (1)
  1. SUGAMMADEX SODIUM [Suspect]
     Active Substance: SUGAMMADEX SODIUM
     Indication: NEUROMUSCULAR BLOCKADE REVERSAL
     Route: 042
     Dates: start: 20180807

REACTIONS (1)
  - Tachyarrhythmia [Recovered/Resolved]

NARRATIVE: CASE EVENT DATE: 20180807
